FAERS Safety Report 18970706 (Version 1)
Quarter: 2021Q1

REPORT INFORMATION
  Report Type: Spontaneous
  Country: US (occurrence: US)
  Receive Date: 20210305
  Receipt Date: 20210305
  Transmission Date: 20210420
  Serious: Yes (Hospitalization)
  Sender: FDA-Public Use
  Company Number: US-TEVA-2021-US-1885305

PATIENT
  Age: 66 Year
  Sex: Female

DRUGS (5)
  1. TRIAMCINOLONE ACETONIDE. [Suspect]
     Active Substance: TRIAMCINOLONE ACETONIDE
     Indication: PAIN
  2. ISOVUE [Suspect]
     Active Substance: IOPAMIDOL
     Indication: DRUG THERAPY
     Dosage: 240 CONTRAST DYE
     Route: 065
  3. BUPIVACAINE. [Suspect]
     Active Substance: BUPIVACAINE
     Indication: ELECTIVE PROCEDURE
     Dosage: 2CC OF BUPIVACAINE
     Route: 065
  4. TRIAMCINOLONE ACETONIDE. [Suspect]
     Active Substance: TRIAMCINOLONE ACETONIDE
     Indication: ELECTIVE PROCEDURE
     Dosage: 1CC TRIAMCINOLONE ACETONIDE 40MG/ML
     Route: 065
  5. BUPIVACAINE. [Suspect]
     Active Substance: BUPIVACAINE
     Indication: PAIN

REACTIONS (1)
  - Clostridium difficile colitis [Unknown]
